FAERS Safety Report 5330924-2 (Version None)
Quarter: 2007Q2

REPORT INFORMATION
  Report Type: 
  Country: None (occurrence: None)
  Receive Date: 20070517
  Receipt Date: 20070501
  Transmission Date: 20071010
  Serious: Yes (Other)
  Sender: FDA-Public Use
  Company Number: 8023878

PATIENT
  Age: 7 Year
  Sex: Female
  Weight: 16 kg

DRUGS (7)
  1. LEVETIRACETAM [Suspect]
     Indication: MYOCLONUS
     Dosage: 240 MG /D
  2. CLONAZEPAM [Concomitant]
  3. LACTULOSE [Concomitant]
  4. NEOMYCINE [Concomitant]
  5. VALPROIC ACID [Concomitant]
  6. CLOBAZAM [Concomitant]
  7. TOPIRAMATE [Concomitant]

REACTIONS (1)
  - BLOOD CREATINE PHOSPHOKINASE INCREASED [None]
